FAERS Safety Report 14841747 (Version 1)
Quarter: 2018Q2

REPORT INFORMATION
  Report Type: Spontaneous
  Country: AT (occurrence: AT)
  Receive Date: 20180503
  Receipt Date: 20180503
  Transmission Date: 20180711
  Serious: Yes (Death, Hospitalization, Other)
  Sender: FDA-Public Use
  Company Number: AT-ACTELION-A-CH2018-171287

PATIENT
  Age: 72 Year
  Sex: Female

DRUGS (1)
  1. OPSUMIT [Suspect]
     Active Substance: MACITENTAN
     Indication: PULMONARY ARTERIAL HYPERTENSION
     Dosage: 10 MG, UNK
     Route: 048

REACTIONS (6)
  - Surgery [Unknown]
  - Death [Fatal]
  - Pancreaticoduodenectomy [Unknown]
  - Dialysis [Unknown]
  - Intestinal perforation [Unknown]
  - Haemorrhage [Unknown]

NARRATIVE: CASE EVENT DATE: 20171208
